FAERS Safety Report 6587010-3 (Version None)
Quarter: 2010Q1

REPORT INFORMATION
  Report Type: 
  Country: None (occurrence: None)
  Receive Date: 20100217
  Receipt Date: 20090408
  Transmission Date: 20100710
  Serious: Yes (Other)
  Sender: FDA-Public Use
  Company Number: US-ALLERGAN-0904861US

PATIENT
  Age: 58 Year
  Sex: Female

DRUGS (2)
  1. BOTOX [Suspect]
     Indication: NECK PAIN
     Dosage: 200 UNITS, SINGLE
     Route: 030
  2. BOTOX [Suspect]
     Indication: TORTICOLLIS

REACTIONS (2)
  - DYSPHAGIA [None]
  - SWELLING FACE [None]
